FAERS Safety Report 9060265 (Version 2)
Quarter: 2013Q1

REPORT INFORMATION
  Report Type: Report from Study
  Country: US (occurrence: US)
  Receive Date: 20130211
  Receipt Date: 20130215
  Transmission Date: 20140127
  Serious: Yes (Other)
  Sender: FDA-Public Use
  Company Number: US-ABBOTT-12P-163-1017685-00

PATIENT
  Age: 35 None
  Sex: Male
  Weight: 78.54 kg

DRUGS (11)
  1. HUMIRA PEN [Suspect]
     Indication: CROHN^S DISEASE
     Dates: end: 201004
  2. HUMIRA PEN [Suspect]
     Dates: start: 201204
  3. ENTOCORT [Concomitant]
     Indication: CROHN^S DISEASE
     Dosage: 2 DOSAGE FORMS A DAY
  4. AZATHIOPRINE [Concomitant]
     Indication: CROHN^S DISEASE
  5. UNKNOWN MEDICATION [Concomitant]
     Indication: PRODUCT USED FOR UNKNOWN INDICATION
  6. ACETAMINOPHEN [Concomitant]
     Indication: PRODUCT USED FOR UNKNOWN INDICATION
  7. ALENDRONATE [Concomitant]
     Indication: PRODUCT USED FOR UNKNOWN INDICATION
     Route: 048
  8. AZATHIOPRINE [Concomitant]
     Indication: PRODUCT USED FOR UNKNOWN INDICATION
     Route: 048
  9. CIMZIA [Concomitant]
     Indication: PRODUCT USED FOR UNKNOWN INDICATION
     Dosage: 2 INJECTIONS
     Route: 058
  10. ENTOCORT EC [Concomitant]
     Dosage: PHYSICIAN REQUESTED BRAND 20 JAN 2012
     Route: 048
  11. LOMOTIL [Concomitant]
     Indication: DIARRHOEA
     Dosage: 0.025MG - 2.5 MG AS NEEDED
     Route: 048

REACTIONS (15)
  - Intestinal resection [Unknown]
  - Intraocular lens implant [Recovered/Resolved]
  - Fistula [Unknown]
  - Device malfunction [Unknown]
  - Colon adenoma [Unknown]
  - Fatigue [Unknown]
  - Weight decreased [Unknown]
  - Abdominal pain lower [Unknown]
  - Proctalgia [Unknown]
  - Faeces discoloured [Unknown]
  - Change of bowel habit [Unknown]
  - Diarrhoea [Unknown]
  - Nausea [Unknown]
  - Rectal haemorrhage [Unknown]
  - Defaecation urgency [Unknown]
